FAERS Safety Report 11060962 (Version 2)
Quarter: 2015Q2

REPORT INFORMATION
  Report Type: Spontaneous
  Country: US (occurrence: US)
  Receive Date: 20150424
  Receipt Date: 20150529
  Transmission Date: 20150821
  Serious: No
  Sender: FDA-Public Use
  Company Number: US-ASTRAZENECA-2015SE36529

PATIENT
  Age: 20546 Day
  Sex: Male
  Weight: 81.6 kg

DRUGS (3)
  1. RHINOCORT AQUA [Suspect]
     Active Substance: BUDESONIDE
     Indication: MULTIPLE ALLERGIES
     Dosage: GENERIC, BUDESONIDE NASAL SPRAY, 128UG, 2 SPRAYS IN EACH NOSTRIL, DAILY
     Route: 045
     Dates: start: 201503
  2. RHINOCORT AQUA [Suspect]
     Active Substance: BUDESONIDE
     Indication: MULTIPLE ALLERGIES
     Dosage: 128UG, 2 SPRAYS IN EACH NOSTRIL, DAILY
     Route: 045
     Dates: end: 201501
  3. PRILOSEC OTC [Suspect]
     Active Substance: OMEPRAZOLE MAGNESIUM
     Indication: GASTROOESOPHAGEAL REFLUX DISEASE
     Route: 048

REACTIONS (11)
  - Nasal congestion [Unknown]
  - Insomnia [Unknown]
  - Malaise [Unknown]
  - Sneezing [Unknown]
  - Intentional product use issue [Not Recovered/Not Resolved]
  - Drug ineffective [Unknown]
  - Adverse event [Unknown]
  - Lacrimation increased [Unknown]
  - Feeling abnormal [Unknown]
  - Epistaxis [Unknown]
  - Off label use [Unknown]

NARRATIVE: CASE EVENT DATE: 201503
